FAERS Safety Report 7369043-2 (Version None)
Quarter: 2011Q1

REPORT INFORMATION
  Report Type: 
  Country: None (occurrence: None)
  Receive Date: 20110323
  Receipt Date: 20110316
  Transmission Date: 20110831
  Serious: Yes (Other)
  Sender: FDA-Public Use
  Company Number: FR-PFIZER INC-2011057655

PATIENT
  Age: 57 Year
  Sex: Female

DRUGS (3)
  1. IBUPROFEN [Concomitant]
  2. LYRICA [Suspect]
     Dosage: 75 MG, 3X/DAY
     Dates: start: 20101201, end: 20110201
  3. DAFALGAN [Concomitant]

REACTIONS (1)
  - HYPERTHYROIDISM [None]
